FAERS Safety Report 5326312-5 (Version None)
Quarter: 2007Q2

REPORT INFORMATION
  Report Type: 
  Country: None (occurrence: None)
  Receive Date: 20070516
  Receipt Date: 20070501
  Transmission Date: 20071010
  Serious: Yes (Death)
  Sender: FDA-Public Use
  Company Number: US-GENENTECH-241359

PATIENT
  Sex: Male

DRUGS (4)
  1. BEVACIZUMAB [Suspect]
     Indication: NON-SMALL CELL LUNG CANCER
     Dosage: 10 MG/KG, UNK
     Route: 042
     Dates: start: 20061102
  2. ERLOTINIB [Suspect]
     Indication: NON-SMALL CELL LUNG CANCER
     Dosage: 50 MG, QD
     Route: 048
     Dates: start: 20061102
  3. CETUXIMAB [Suspect]
     Indication: NON-SMALL CELL LUNG CANCER
     Dosage: 250 MG/M2, UNK
     Route: 042
     Dates: start: 20061102, end: 20061130
  4. COUMADIN [Suspect]
     Indication: DRUG USE FOR UNKNOWN INDICATION

REACTIONS (8)
  - ARRHYTHMIA [None]
  - DISEASE PROGRESSION [None]
  - EPISTAXIS [None]
  - HAEMORRHAGE [None]
  - MOUTH HAEMORRHAGE [None]
  - SUDDEN DEATH [None]
  - UNEVALUABLE EVENT [None]
  - VOMITING [None]
